FAERS Safety Report 15319864 (Version 1)
Quarter: 2018Q3

REPORT INFORMATION
  Report Type: Spontaneous
  Country: US (occurrence: US)
  Receive Date: 20180827
  Receipt Date: 20180827
  Transmission Date: 20181010
  Serious: No
  Sender: FDA-Public Use
  Company Number: US-BAUSCH-BL-2018-022320

PATIENT
  Age: 69 Year
  Sex: Female

DRUGS (2)
  1. BESIVANCE [Suspect]
     Active Substance: BESIFLOXACIN
     Indication: OFF LABEL USE
  2. BESIVANCE [Suspect]
     Active Substance: BESIFLOXACIN
     Indication: POSTOPERATIVE CARE
     Dosage: ONE DROP IN THE RIGHT EYE 2 TIMES A DAY
     Route: 047
     Dates: start: 20180724, end: 20180727

REACTIONS (4)
  - Eye inflammation [Recovered/Resolved]
  - Off label use [Recovered/Resolved]
  - Ocular hyperaemia [Recovered/Resolved]
  - Drug hypersensitivity [Recovered/Resolved]

NARRATIVE: CASE EVENT DATE: 201807
